FAERS Safety Report 19068970 (Version 1)
Quarter: 2021Q1

REPORT INFORMATION
  Report Type: Report from Study
  Country: US (occurrence: US)
  Receive Date: 20210329
  Receipt Date: 20210329
  Transmission Date: 20210420
  Serious: Yes (Other)
  Sender: FDA-Public Use
  Company Number: US-BAYER-2021-110435

PATIENT
  Age: 51 Year
  Sex: Male

DRUGS (1)
  1. STIVARGA [Suspect]
     Active Substance: REGORAFENIB
     Indication: RECTAL CANCER
     Dosage: 160 MG, QD 21 DAYS ON THEN 7 DAYS OFF
     Route: 048

REACTIONS (3)
  - Diarrhoea [None]
  - Neuropathy peripheral [None]
  - Cognitive disorder [None]

NARRATIVE: CASE EVENT DATE: 202102
